FAERS Safety Report 9504007 (Version 3)
Quarter: 2013Q4

REPORT INFORMATION
  Report Type: Spontaneous
  Country: BR (occurrence: BR)
  Receive Date: 20130906
  Receipt Date: 20131118
  Transmission Date: 20140711
  Serious: Yes (Other)
  Sender: FDA-Public Use
  Company Number: CHNY2013BR001855

PATIENT
  Age: 58 Year
  Sex: Female
  Weight: 92 kg

DRUGS (2)
  1. AGASTEN [Suspect]
     Indication: RHINITIS ALLERGIC
     Dosage: 2 DF, QD
     Route: 048
  2. AGASTEN [Suspect]
     Indication: ARTHROPOD BITE
     Dosage: 1 DF, QD
     Route: 048

REACTIONS (9)
  - Panic disorder [Not Recovered/Not Resolved]
  - Pneumonia [Recovered/Resolved]
  - Rhinitis [Not Recovered/Not Resolved]
  - Crying [Recovered/Resolved]
  - Arthropod bite [Recovered/Resolved]
  - Tremor [Recovered/Resolved]
  - Insomnia [Not Recovered/Not Resolved]
  - Headache [Recovered/Resolved]
  - Drug ineffective [Unknown]
